FAERS Safety Report 5056815-2 (Version None)
Quarter: 2006Q2

REPORT INFORMATION
  Report Type: 
  Country: None (occurrence: None)
  Receive Date: 20060619
  Receipt Date: 20050803
  Transmission Date: 20061013
  Serious: Yes (Life-Threatening, Disabling)
  Sender: FDA-Public Use
  Company Number: WAES 0508USA01049

PATIENT
  Sex: Male

DRUGS (1)
  1. COZAAR [Suspect]
     Dosage: PO
     Route: 048

REACTIONS (1)
  - CEREBROVASCULAR ACCIDENT [None]
